FAERS Safety Report 4701774-2 (Version None)
Quarter: 2005Q2

REPORT INFORMATION
  Report Type: 
  Country: None (occurrence: None)
  Receive Date: 20050624
  Receipt Date: 20050111
  Transmission Date: 20051028
  Serious: No
  Sender: FDA-Public Use
  Company Number: M-05-012

PATIENT
  Age: 73 Year
  Sex: Male
  Weight: 74.3899 kg

DRUGS (3)
  1. SORINE [Suspect]
     Indication: ATRIAL FIBRILLATION
     Dosage: 80 MG BID PO
     Route: 048
  2. SORINE [Suspect]
     Indication: ATRIAL FIBRILLATION
     Dosage: 120 MG BID PO
     Route: 048
  3. ZOCOR [Concomitant]

REACTIONS (1)
  - DYSPNOEA [None]
